FAERS Safety Report 9494896 (Version 1)
Quarter: 2013Q3

REPORT INFORMATION
  Report Type: Spontaneous
  Country: US (occurrence: None)
  Receive Date: 20130830
  Receipt Date: 20130830
  Transmission Date: 20140515
  Serious: Yes (Other)
  Sender: FDA-Public Use
  Company Number: None

PATIENT
  Age: 64 Year
  Sex: Male

DRUGS (1)
  1. STIVARGA, 40 MG, BAYER [Suspect]
     Indication: COLON CANCER
     Route: 048
     Dates: start: 20130809, end: 20130823

REACTIONS (5)
  - Hepatotoxicity [None]
  - Aspartate aminotransferase increased [None]
  - Alanine aminotransferase increased [None]
  - Platelet count increased [None]
  - Blood alkaline phosphatase increased [None]
